FAERS Safety Report 4439435-X (Version None)
Quarter: 2004Q3

REPORT INFORMATION
  Report Type: 
  Country: None (occurrence: None)
  Receive Date: 20040728
  Receipt Date: 20040312
  Transmission Date: 20050211
  Serious: No
  Sender: FDA-Public Use
  Company Number: USA040361932

PATIENT
  Age: 17 Year
  Sex: Male
  Weight: 68 kg

DRUGS (2)
  1. STRATTERA [Suspect]
     Indication: ATTENTION DEFICIT/HYPERACTIVITY DISORDER
     Dosage: 40 MG DAY
     Dates: start: 20030801
  2. ANTIBIOTIC [Concomitant]

REACTIONS (3)
  - DEPRESSION [None]
  - PERSONALITY CHANGE [None]
  - WEIGHT DECREASED [None]
